FAERS Safety Report 6421853-1 (Version None)
Quarter: 2009Q4

REPORT INFORMATION
  Report Type: 
  Country: None (occurrence: None)
  Receive Date: 20091030
  Receipt Date: 20091022
  Transmission Date: 20100525
  Serious: Yes (Other)
  Sender: FDA-Public Use
  Company Number: GB-ABBOTT-09P-167-0599433-00

PATIENT
  Age: 50 Year
  Sex: Male

DRUGS (4)
  1. EPILIM TABLETS [Suspect]
     Indication: CONVULSION
     Route: 048
     Dates: start: 20081201, end: 20090101
  2. EPILIM TABLETS [Suspect]
     Route: 048
     Dates: start: 20081201, end: 20090101
  3. PERINDOPRIL [Concomitant]
     Indication: DRUG USE FOR UNKNOWN INDICATION
     Route: 065
  4. LACTULOSE [Concomitant]
     Indication: DRUG USE FOR UNKNOWN INDICATION
     Route: 065

REACTIONS (3)
  - LETHARGY [None]
  - SOMNOLENCE [None]
  - WEIGHT INCREASED [None]
